FAERS Safety Report 6382695-9 (Version None)
Quarter: 2009Q3

REPORT INFORMATION
  Report Type: 
  Country: None (occurrence: None)
  Receive Date: 20090928
  Receipt Date: 20090928
  Transmission Date: 20100115
  Serious: Yes (Death)
  Sender: FDA-Public Use
  Company Number: None

PATIENT
  Age: 41 Year
  Sex: Male
  Weight: 79.3795 kg

DRUGS (1)
  1. MUCINEX D [Suspect]
     Indication: MULTIPLE ALLERGIES
     Dosage: 2 TABLETS 12 HOURS PO
     Route: 048
     Dates: start: 20070515, end: 20070530

REACTIONS (5)
  - BLOOD PRESSURE INCREASED [None]
  - CARDIAC ARREST [None]
  - DIZZINESS [None]
  - PHAEOCHROMOCYTOMA CRISIS [None]
  - VENTRICULAR TACHYCARDIA [None]
